FAERS Safety Report 20557983 (Version 7)
Quarter: 2024Q1

REPORT INFORMATION
  Report Type: Spontaneous
  Country: US (occurrence: US)
  Receive Date: 20220307
  Receipt Date: 20240229
  Transmission Date: 20240410
  Serious: Yes (Disabling, Other)
  Sender: FDA-Public Use
  Company Number: US-ORGANON-O2203USA000297

PATIENT
  Sex: Male
  Weight: 74.82 kg

DRUGS (10)
  1. SINGULAIR [Suspect]
     Active Substance: MONTELUKAST SODIUM
     Indication: Asthma
     Dosage: 1 TABLET EVERY DAY IN THE EVENING
     Route: 048
     Dates: start: 2006, end: 2020
  2. SINGULAIR [Suspect]
     Active Substance: MONTELUKAST SODIUM
     Indication: Hypersensitivity
  3. SINGULAIR [Suspect]
     Active Substance: MONTELUKAST SODIUM
     Dosage: 1 PO QHS
     Route: 048
     Dates: start: 20060828, end: 20190430
  4. SINGULAIR [Suspect]
     Active Substance: MONTELUKAST SODIUM
     Dosage: TAKE BY MOUTH. 1 PO QHS
     Route: 048
     Dates: start: 20090204, end: 20090920
  5. ALBUTEROL SULFATE [Suspect]
     Active Substance: ALBUTEROL SULFATE
     Dosage: 2.5 MG (3 ML) VIA NEBULIZER Q4-6H
     Dates: start: 20060106, end: 20090204
  6. LOCOID LIPOCREAM [Suspect]
     Active Substance: HYDROCORTISONE BUTYRATE
     Dosage: APPLY TO AREA BID FOR TWO WEEKS AND THEN PRN
     Dates: start: 20060828, end: 20060911
  7. LOCOID LIPOCREAM [Suspect]
     Active Substance: HYDROCORTISONE BUTYRATE
     Dosage: APPLY TO AREA BID FOR TWO WEEKS AND THEN PRN
     Dates: start: 20060911, end: 20190430
  8. ALBUTEROL [Suspect]
     Active Substance: ALBUTEROL
     Dosage: 1-2 PUFFS Q4-6H
     Dates: start: 20070731, end: 20090204
  9. PROVENTIL HFA [Suspect]
     Active Substance: ALBUTEROL SULFATE
     Indication: Wheezing
     Dosage: INHALE. 1-2 PUFFS Q4-6H PRN WHEEZING; ALSO 15-30^ BEFORE? GYM AND LUNCH.?
     Dates: start: 20090204, end: 20190430
  10. PROVENTIL [Suspect]
     Active Substance: ALBUTEROL
     Dosage: VIA NEBULIZER, 2.5 MG (3 ML) NEBULIZER NEBULIZER Q4-6H WHEN HOME SOLUTION AND NOT USING INHALER?
     Dates: start: 20090204, end: 20190430

REACTIONS (15)
  - Neuropsychological symptoms [Not Recovered/Not Resolved]
  - Major depression [Not Recovered/Not Resolved]
  - Generalised anxiety disorder [Not Recovered/Not Resolved]
  - Suicidal ideation [Not Recovered/Not Resolved]
  - Attention deficit hyperactivity disorder [Recovering/Resolving]
  - Post-traumatic stress disorder [Recovering/Resolving]
  - Adverse event [Unknown]
  - Product use issue [Unknown]
  - Product prescribing issue [Unknown]
  - Paranoia [Not Recovered/Not Resolved]
  - Nightmare [Not Recovered/Not Resolved]
  - Anger [Not Recovered/Not Resolved]
  - Feeling of despair [Not Recovered/Not Resolved]
  - Self esteem decreased [Not Recovered/Not Resolved]
  - Memory impairment [Not Recovered/Not Resolved]

NARRATIVE: CASE EVENT DATE: 20060101
